FAERS Safety Report 7740584-9 (Version None)
Quarter: 2011Q3

REPORT INFORMATION
  Report Type: 
  Country: None (occurrence: None)
  Receive Date: 20110909
  Receipt Date: 20110830
  Transmission Date: 20111222
  Serious: Yes (Hospitalization)
  Sender: FDA-Public Use
  Company Number: GB-PFIZER INC-2011195957

PATIENT
  Sex: Male
  Weight: 77.6 kg

DRUGS (4)
  1. IRINOTECAN HCL [Suspect]
     Indication: RECTAL CANCER
     Dosage: 120 MG, WEEKLY (WEEKS 2-5)
     Route: 042
     Dates: start: 20110314, end: 20110404
  2. DOXYCYCLINE [Concomitant]
     Indication: ANTIBIOTIC THERAPY
     Dosage: 100 MG, 2X/DAY
     Route: 048
     Dates: start: 20110311
  3. ERBITUX [Suspect]
     Indication: RECTAL CANCER
     Dosage: 500 MG, WEEKLY
     Route: 042
     Dates: start: 20110307, end: 20110411
  4. CAPECITABINE [Suspect]
     Indication: RECTAL CANCER
     Dosage: 1300 MG, 2X/DAY FOR 5 DAYS PER WEEK
     Route: 048
     Dates: start: 20110314, end: 20110415

REACTIONS (2)
  - PULMONARY EMBOLISM [None]
  - UPPER RESPIRATORY TRACT INFECTION [None]
